FAERS Safety Report 9737094 (Version 1)
Quarter: 2013Q4

REPORT INFORMATION
  Report Type: Spontaneous
  Country: GB (occurrence: GB)
  Receive Date: 20131206
  Receipt Date: 20131206
  Transmission Date: 20140711
  Serious: Yes (Other)
  Sender: FDA-Public Use
  Company Number: GB-ASTRAZENECA-2013SE87611

PATIENT
  Age: 19 Year
  Sex: Female

DRUGS (2)
  1. SYMBICORT [Suspect]
     Indication: ASTHMA
     Dosage: 200/6 2 PUFFS TWO TIMES A DAY
     Route: 055
     Dates: start: 201210, end: 201302
  2. SYMBICORT [Suspect]
     Indication: ASTHMA
     Dosage: 1 PUFF A DAY
     Route: 055
     Dates: start: 201302

REACTIONS (3)
  - Exposure during pregnancy [Unknown]
  - Dyspnoea [Unknown]
  - Intentional drug misuse [Unknown]
